FAERS Safety Report 9578719 (Version 1)
Quarter: 2013Q4

REPORT INFORMATION
  Report Type: Spontaneous
  Country: US (occurrence: US)
  Receive Date: 20131001
  Receipt Date: 20131001
  Transmission Date: 20140711
  Serious: No
  Sender: FDA-Public Use
  Company Number: US-AMGEN-USASP2013014684

PATIENT
  Age: 69 Year
  Sex: Female
  Weight: 90.7 kg

DRUGS (13)
  1. ENBREL [Suspect]
     Indication: PSORIATIC ARTHROPATHY
     Dosage: 50 MG, QWK
     Route: 058
  2. SYMBICORT [Concomitant]
     Dosage: 80-4.5, UNK
  3. PREDNISONE [Concomitant]
     Dosage: 1 MG, UNK
  4. LASIX                              /00032601/ [Concomitant]
     Dosage: 20 MG, UNK
  5. VITAMIN D                          /00107901/ [Concomitant]
     Dosage: 1000 UNIT, UNK
  6. MULTIVITAMINS, PLAIN [Concomitant]
     Dosage: UNK
  7. PROTONIX [Concomitant]
     Dosage: 20 MG, UNK
  8. NORVASC [Concomitant]
     Dosage: 5 MG, UNK
  9. SPIRONOLACTONE [Concomitant]
     Dosage: 25 MG, UNK
  10. CALCIUM [Concomitant]
     Dosage: 500 UNK, UNK
  11. METHOTREXATE [Concomitant]
     Dosage: 2.5 MG, UNK
  12. GABAPENTIN [Concomitant]
     Dosage: 100 MG, UNK
  13. DULERA [Concomitant]
     Dosage: 100-5 MCG, UNK

REACTIONS (1)
  - Nasopharyngitis [Unknown]
